FAERS Safety Report 5669637-6 (Version None)
Quarter: 2008Q1

REPORT INFORMATION
  Report Type: 
  Country: None (occurrence: None)
  Receive Date: 20080317
  Receipt Date: 20080310
  Transmission Date: 20080703
  Serious: Yes (Disabling)
  Sender: FDA-Public Use
  Company Number: BE-WYE-G01223908

PATIENT
  Age: 30 Year
  Sex: Female

DRUGS (1)
  1. EFFEXOR [Suspect]

REACTIONS (3)
  - AMAUROSIS FUGAX [None]
  - HYPOTENSION [None]
  - TACHYCARDIA [None]
